FAERS Safety Report 6503782-8 (Version None)
Quarter: 2009Q4

REPORT INFORMATION
  Report Type: 
  Country: None (occurrence: None)
  Receive Date: 20091217
  Receipt Date: 20091208
  Transmission Date: 20100525
  Serious: Yes (Hospitalization)
  Sender: FDA-Public Use
  Company Number: A0789962A

PATIENT
  Age: 45 Year
  Sex: Female

DRUGS (1)
  1. AVANDIA [Suspect]
     Dosage: 4MG UNKNOWN
     Route: 048
     Dates: start: 20000101, end: 20060101

REACTIONS (3)
  - CARDIAC DISORDER [None]
  - CARDIOVASCULAR DISORDER [None]
  - THROMBOSIS [None]
